FAERS Safety Report 5501844-5 (Version None)
Quarter: 2007Q4

REPORT INFORMATION
  Report Type: 
  Country: None (occurrence: None)
  Receive Date: 20071030
  Receipt Date: 20070131
  Transmission Date: 20080405
  Serious: Yes (Other)
  Sender: FDA-Public Use
  Company Number: A0637809A

PATIENT
  Sex: Female

DRUGS (5)
  1. SEREVENT [Suspect]
     Indication: ASTHMA
     Dosage: 1PUFF TWICE PER DAY
     Route: 055
  2. ALBUTEROL [Concomitant]
  3. PLAQUENIL [Concomitant]
  4. UNKNOWN STOMACH MEDICATION [Concomitant]
  5. SINGULAIR [Concomitant]

REACTIONS (2)
  - ASTHMA [None]
  - HEADACHE [None]
